FAERS Safety Report 19402320 (Version 1)
Quarter: 2021Q2

REPORT INFORMATION
  Report Type: Spontaneous
  Country: US (occurrence: US)
  Receive Date: 20210610
  Receipt Date: 20210610
  Transmission Date: 20210717
  Serious: No
  Sender: FDA-Public Use
  Company Number: US-COLLEGIUM PHARMACEUTICAL, INC.-2020CGM00136

PATIENT
  Age: 62 Year
  Sex: Male
  Weight: 63.49 kg

DRUGS (2)
  1. XTAMPZA ER [Suspect]
     Active Substance: OXYCODONE
     Indication: PAIN
     Dosage: 18 MG, 1X/DAY
     Route: 048
     Dates: start: 202008
  2. OXYCODONE IMMEDIATE RELEASE [Concomitant]
     Active Substance: OXYCODONE
     Dosage: 90 MG

REACTIONS (3)
  - Off label use [Not Recovered/Not Resolved]
  - Product substitution issue [Not Recovered/Not Resolved]
  - Drug ineffective [Not Recovered/Not Resolved]

NARRATIVE: CASE EVENT DATE: 202008
